FAERS Safety Report 25324325 (Version 1)
Quarter: 2025Q2

REPORT INFORMATION
  Report Type: Spontaneous
  Country: US (occurrence: None)
  Receive Date: 20250515
  Receipt Date: 20250515
  Transmission Date: 20250716
  Serious: Yes (Hospitalization)
  Sender: FDA-CTU
  Company Number: None

PATIENT
  Age: 67 Year
  Sex: Female
  Weight: 91 kg

DRUGS (3)
  1. POSACONAZOLE [Suspect]
     Active Substance: POSACONAZOLE
     Dosage: FREQUENCY : TWICE A DAY;?
     Route: 048
  2. CIPROFLOXACIN [Suspect]
     Active Substance: CIPROFLOXACIN
  3. AZITHROMYCIN [Suspect]
     Active Substance: AZITHROMYCIN

REACTIONS (7)
  - Hypokalaemia [None]
  - Pneumonia [None]
  - Abdominal discomfort [None]
  - Dysgeusia [None]
  - Arthralgia [None]
  - Incorrect dose administered [None]
  - Product prescribing error [None]

NARRATIVE: CASE EVENT DATE: 20250508
